FAERS Safety Report 5315171-2 (Version None)
Quarter: 2007Q2

REPORT INFORMATION
  Report Type: 
  Country: None (occurrence: None)
  Receive Date: 20070502
  Receipt Date: 20070423
  Transmission Date: 20071010
  Serious: Yes (Hospitalization, Other)
  Sender: FDA-Public Use
  Company Number: US-PFIZER INC-2004091092

PATIENT
  Sex: Female
  Weight: 99.8 kg

DRUGS (11)
  1. NORVASC [Suspect]
     Indication: HYPERTENSION
     Route: 048
     Dates: start: 20040601, end: 20041101
  2. TIKOSYN [Suspect]
     Indication: ATRIAL FIBRILLATION
     Dosage: FREQ:BID  INTERVAL:  EVERY DAY
     Route: 048
  3. LEVOXYL [Suspect]
     Dosage: FREQ:UNKNOWN
     Route: 048
  4. TOPROL-XL [Concomitant]
     Dosage: FREQ:UNKNOWN
     Route: 065
  5. ZETIA [Concomitant]
     Dosage: FREQ:UNKNOWN
     Route: 065
  6. CLONIDINE [Concomitant]
     Dosage: FREQ:UNKNOWN
     Route: 065
  7. WARFARIN SODIUM [Concomitant]
     Dosage: FREQ:UNKNOWN
     Route: 065
  8. HYTRIN [Concomitant]
     Indication: HYPERTENSION
     Dosage: FREQ:UNKNOWN
     Route: 065
  9. DEMADEX [Concomitant]
     Dosage: FREQ:UNKNOWN
     Route: 065
  10. AVAPRO [Concomitant]
     Indication: HYPERTENSION
     Dosage: FREQ:UNKNOWN
     Route: 065
  11. DIGOXIN [Concomitant]
     Dosage: FREQ:UNKNOWN
     Route: 065

REACTIONS (8)
  - ALOPECIA [None]
  - ATRIAL FIBRILLATION [None]
  - BACK PAIN [None]
  - BONE DISORDER [None]
  - CELLULITIS [None]
  - CONDITION AGGRAVATED [None]
  - JOINT SWELLING [None]
  - THYROID DISORDER [None]
